FAERS Safety Report 14861789 (Version 1)
Quarter: 2018Q2

REPORT INFORMATION
  Report Type: Spontaneous
  Country: US (occurrence: US)
  Receive Date: 20180508
  Receipt Date: 20180508
  Transmission Date: 20180711
  Serious: No
  Sender: FDA-Public Use
  Company Number: US-VIFOR (INTERNATIONAL) INC.-VIT-2017-14577

PATIENT
  Age: 74 Year
  Sex: Male

DRUGS (14)
  1. DONEPEZIL HYDROCHLORIDE. [Concomitant]
     Active Substance: DONEPEZIL HYDROCHLORIDE
  2. METFORMIN HYDROCHLORIDE. [Concomitant]
     Active Substance: METFORMIN HYDROCHLORIDE
  3. MULTI [Concomitant]
  4. CHLORTALIDONE [Concomitant]
     Active Substance: CHLORTHALIDONE
  5. PIOGLITAZONE HYDROCHLORIDE. [Concomitant]
     Active Substance: PIOGLITAZONE HYDROCHLORIDE
  6. ACETYLSALICYLIC ACID [Concomitant]
     Active Substance: ASPIRIN
  7. CYANOCOBALAMIN. [Concomitant]
     Active Substance: CYANOCOBALAMIN
  8. CALCIUM [Concomitant]
     Active Substance: CALCIUM
  9. VELTASSA [Suspect]
     Active Substance: PATIROMER
     Route: 048
  10. ALLOPURINOL. [Concomitant]
     Active Substance: ALLOPURINOL
  11. LECITHIN [Concomitant]
     Active Substance: LECITHIN
  12. VELTASSA [Suspect]
     Active Substance: PATIROMER
     Indication: HYPERKALAEMIA
     Route: 048
     Dates: start: 20171208
  13. GLYCERYL TRINITRATE [Concomitant]
     Active Substance: NITROGLYCERIN
  14. TRILYTE [Concomitant]
     Active Substance: POLYETHYLENE GLYCOL 3350\POTASSIUM CHLORIDE\SODIUM BICARBONATE\SODIUM CHLORIDE

REACTIONS (2)
  - Blood potassium increased [Unknown]
  - Off label use [Unknown]

NARRATIVE: CASE EVENT DATE: 2017
